FAERS Safety Report 8600343-1 (Version None)
Quarter: 2012Q3

REPORT INFORMATION
  Report Type: 
  Country: None (occurrence: None)
  Receive Date: 20120817
  Receipt Date: 20120813
  Transmission Date: 20120928
  Serious: No
  Sender: FDA-Public Use
  Company Number: US-PFIZER INC-2012197661

PATIENT
  Age: 78 Year
  Sex: Female
  Weight: 86.168 kg

DRUGS (3)
  1. METOPROLOL [Concomitant]
     Indication: BLOOD CHOLESTEROL INCREASED
     Dosage: 50 MG, DAILY
  2. GABAPENTIN [Suspect]
     Indication: FIBROMYALGIA
     Dosage: UNK
  3. LIPITOR [Concomitant]
     Indication: HYPERTENSION
     Dosage: 10 MG, DAILY

REACTIONS (6)
  - NAUSEA [None]
  - HEADACHE [None]
  - TREMOR [None]
  - ABDOMINAL DISCOMFORT [None]
  - PAIN [None]
  - MALAISE [None]
